FAERS Safety Report 4642817-4 (Version None)
Quarter: 2005Q2

REPORT INFORMATION
  Report Type: 
  Country: None (occurrence: None)
  Receive Date: 20050421
  Receipt Date: 20050408
  Transmission Date: 20051028
  Serious: Yes (Death)
  Sender: FDA-Public Use
  Company Number: 430005M05GBR

PATIENT
  Age: 71 Year
  Sex: Male

DRUGS (3)
  1. NOVANTRONE [Suspect]
     Indication: CHRONIC LYMPHOCYTIC LEUKAEMIA
     Dosage: 5MG/M2
     Dates: end: 19990901
  2. CYCLOPHOSPHAMIDE [Suspect]
     Indication: CHRONIC LYMPHOCYTIC LEUKAEMIA
     Dosage: 250 MG/M2
     Dates: end: 19990901
  3. FLUDARA [Suspect]
     Indication: CHRONIC LYMPHOCYTIC LEUKAEMIA
     Dosage: INTRAVENOUS
     Route: 042
     Dates: end: 19990901

REACTIONS (3)
  - CHRONIC LYMPHOCYTIC LEUKAEMIA TRANSFORMATION [None]
  - CYTOGENETIC ANALYSIS ABNORMAL [None]
  - EPSTEIN-BARR VIRUS SEROLOGY POSITIVE [None]
